FAERS Safety Report 6345152-1 (Version None)
Quarter: 2009Q3

REPORT INFORMATION
  Report Type: 
  Country: None (occurrence: None)
  Receive Date: 20090909
  Receipt Date: 20090828
  Transmission Date: 20100115
  Serious: Yes (Other)
  Sender: FDA-Public Use
  Company Number: US-JNJFOC-20090900707

PATIENT
  Age: 53 Year
  Sex: Female
  Weight: 64.41 kg

DRUGS (3)
  1. TYLENOL COLD MULTI-SYMPTOM NIGHTTIME COOL BURST [Suspect]
     Indication: SINUS CONGESTION
     Route: 048
     Dates: start: 20090825, end: 20090827
  2. TYLENOL SINUS CONGESTION + PAIN DAYTIME COOL BURST [Suspect]
     Indication: SINUS CONGESTION
     Dosage: 1-2 DOSES, 1-2 TIMES DAILY, INITIATED 25-AUG-2009 TO 27-AUG-2009
     Route: 048
     Dates: start: 20090825, end: 20090827
  3. PREMARIN [Concomitant]
     Indication: HORMONE REPLACEMENT THERAPY

REACTIONS (6)
  - DRUG INEFFECTIVE [None]
  - DYSPNOEA [None]
  - HEADACHE [None]
  - NERVOUSNESS [None]
  - PRURITUS [None]
  - SOMNOLENCE [None]
